FAERS Safety Report 5041841-X (Version None)
Quarter: 2006Q3

REPORT INFORMATION
  Report Type: 
  Country: None (occurrence: None)
  Receive Date: 20060704
  Receipt Date: 20050810
  Transmission Date: 20061208
  Serious: Yes (Hospitalization, Other)
  Sender: FDA-Public Use
  Company Number: PHEH2005US08899

PATIENT
  Age: 46 Year
  Sex: Male

DRUGS (3)
  1. CYCLOSPORINE [Suspect]
     Indication: RENAL TRANSPLANT
     Dosage: 500 MG, QD
     Route: 048
     Dates: start: 20050705
  2. CELLCEPT [Suspect]
     Dosage: 2000 MG, UNK
     Route: 048
     Dates: start: 20050706
  3. PREDNISONE [Suspect]
     Dosage: 15 MG, UNK
     Route: 048
     Dates: start: 20050710

REACTIONS (16)
  - ACUTE PULMONARY OEDEMA [None]
  - ANAEMIA [None]
  - BLOOD CREATININE INCREASED [None]
  - BLOOD UREA INCREASED [None]
  - CARDIAC FAILURE CONGESTIVE [None]
  - COUGH [None]
  - DYSPNOEA [None]
  - DYSPNOEA PAROXYSMAL NOCTURNAL [None]
  - HAEMATOMA [None]
  - HAEMATOMA EVACUATION [None]
  - HEART RATE IRREGULAR [None]
  - LUNG INFILTRATION [None]
  - ORTHOPNOEA [None]
  - PYREXIA [None]
  - VENTRICULAR HYPERTROPHY [None]
  - WHITE BLOOD CELL COUNT INCREASED [None]
